FAERS Safety Report 8595377-X (Version None)
Quarter: 2012Q3

REPORT INFORMATION
  Report Type: 
  Country: None (occurrence: None)
  Receive Date: 20120815
  Receipt Date: 20120517
  Transmission Date: 20120928
  Serious: No
  Sender: FDA-Public Use
  Company Number: US-BRISTOL-MYERS SQUIBB COMPANY-16422768

PATIENT
  Age: 79 Year
  Sex: Female

DRUGS (6)
  1. AVALIDE [Concomitant]
  2. INSULIN [Concomitant]
  3. XANAX [Concomitant]
  4. ONGLYZA [Suspect]
     Dosage: START DATE:13FEB
     Route: 048
     Dates: start: 20120213
  5. EYE DROPS [Concomitant]
  6. HYDRALAZINE HCL [Concomitant]

REACTIONS (7)
  - NAUSEA [None]
  - MALAISE [None]
  - VISION BLURRED [None]
  - BLOOD GLUCOSE INCREASED [None]
  - ARTHRITIS [None]
  - HERPES ZOSTER [None]
  - HEADACHE [None]
